FAERS Safety Report 7677170-5 (Version None)
Quarter: 2011Q3

REPORT INFORMATION
  Report Type: 
  Country: None (occurrence: None)
  Receive Date: 20110811
  Receipt Date: 20110728
  Transmission Date: 20111222
  Serious: Yes (Hospitalization, Other)
  Sender: FDA-Public Use
  Company Number: US-ELI_LILLY_AND_COMPANY-US201008007856

PATIENT
  Sex: Female

DRUGS (4)
  1. FORTEO [Suspect]
     Indication: OSTEOPOROSIS
     Dosage: 20 UG, DAILY (1/D)
     Route: 065
     Dates: start: 20090925
  2. FORTEO [Suspect]
     Dosage: 20 UG, DAILY (1/D)
     Route: 065
  3. FORTEO [Suspect]
     Dosage: 20 UG, DAILY (1/D)
     Route: 065
  4. CALCIUM W/VITAMIN D                /00188401/ [Concomitant]

REACTIONS (12)
  - INFLUENZA [None]
  - ARTHROPATHY [None]
  - PAIN IN EXTREMITY [None]
  - ARTERIAL STENOSIS [None]
  - PYREXIA [None]
  - PAIN [None]
  - ARTHRALGIA [None]
  - BACK PAIN [None]
  - ARTERIAL OCCLUSIVE DISEASE [None]
  - BRONCHITIS [None]
  - FALL [None]
  - SEASONAL ALLERGY [None]
